FAERS Safety Report 7422344-1 (Version None)
Quarter: 2011Q2

REPORT INFORMATION
  Report Type: 
  Country: None (occurrence: None)
  Receive Date: 20110419
  Receipt Date: 20110407
  Transmission Date: 20111010
  Serious: No
  Sender: FDA-Public Use
  Company Number: US-BIOGENIDEC-2011BI002446

PATIENT
  Age: 41 Year
  Sex: Female

DRUGS (2)
  1. AVONEX [Concomitant]
     Indication: MULTIPLE SCLEROSIS
     Route: 030
  2. TYSABRI [Suspect]
     Indication: MULTIPLE SCLEROSIS
     Route: 042
     Dates: start: 20100816

REACTIONS (7)
  - PAIN IN EXTREMITY [None]
  - INFUSION SITE REACTION [None]
  - VERTIGO [None]
  - HEADACHE [None]
  - URINARY TRACT INFECTION [None]
  - POOR VENOUS ACCESS [None]
  - FATIGUE [None]
